FAERS Safety Report 6554406-5 (Version None)
Quarter: 2010Q1

REPORT INFORMATION
  Report Type: 
  Country: None (occurrence: None)
  Receive Date: 20100125
  Receipt Date: 20100125
  Transmission Date: 20100710
  Serious: Yes (Hospitalization)
  Sender: FDA-Public Use
  Company Number: None

PATIENT
  Sex: Male
  Weight: 80.4 kg

DRUGS (7)
  1. METHOTREXATE [Suspect]
     Dosage: 45 MG
     Dates: end: 20091207
  2. THIOGUANINE [Suspect]
     Dosage: 1680 MG
     Dates: end: 20091213
  3. VINCRISTINE SULFATE [Suspect]
     Dosage: 10 MG
     Dates: end: 20091221
  4. CYCLOPHOSPHAMIDE [Suspect]
     Dosage: 2000 MG
     Dates: end: 20091130
  5. CYTARABINE [Suspect]
     Dosage: 1200 MG
     Dates: end: 20091210
  6. DEXAMETHASONE [Suspect]
     Dosage: 280 MG
     Dates: end: 20091122
  7. DOXORUBICIN HCL [Suspect]
     Dosage: 150 MG
     Dates: end: 20091116

REACTIONS (6)
  - ABASIA [None]
  - ACTIVATED PARTIAL THROMBOPLASTIN TIME PROLONGED [None]
  - ASTHENIA [None]
  - MUSCULAR WEAKNESS [None]
  - NEUROTOXICITY [None]
  - WEIGHT BEARING DIFFICULTY [None]
